FAERS Safety Report 5371210-4 (Version None)
Quarter: 2007Q2

REPORT INFORMATION
  Report Type: 
  Country: None (occurrence: None)
  Receive Date: 20070626
  Receipt Date: 20070614
  Transmission Date: 20071010
  Serious: Yes (Other)
  Sender: FDA-Public Use
  Company Number: US-PFIZER INC-2007050844

PATIENT
  Sex: Female
  Weight: 57.3 kg

DRUGS (8)
  1. CHANTIX [Suspect]
     Indication: EX-SMOKER
     Dates: start: 20070501, end: 20070605
  2. PRAVACHOL [Concomitant]
  3. LOTREL [Concomitant]
  4. BETIMOL [Concomitant]
     Route: 047
  5. LUMIGAN [Concomitant]
     Route: 047
  6. BUSPAR [Concomitant]
  7. ACETYLSALICYLIC ACID SRT [Concomitant]
  8. XANAX [Concomitant]

REACTIONS (3)
  - HYPOAESTHESIA [None]
  - INSOMNIA [None]
  - STOMACH DISCOMFORT [None]
